FAERS Safety Report 12077354 (Version 8)
Quarter: 2022Q3

REPORT INFORMATION
  Report Type: Report from Study
  Country: DE (occurrence: DE)
  Receive Date: 20160215
  Receipt Date: 20220705
  Transmission Date: 20221027
  Serious: Yes (Life-Threatening, Hospitalization)
  Sender: FDA-Public Use
  Company Number: DE-ASTELLAS-2016US005128

PATIENT
  Sex: Female
  Weight: 57.8 kg

DRUGS (19)
  1. BENDAMUSTINE HYDROCHLORIDE [Suspect]
     Active Substance: BENDAMUSTINE HYDROCHLORIDE
     Indication: Plasma cell myeloma
     Dosage: (1 TO 8 CYCLES) [C1 TO C 8 INDUCTION FOR D1-D2, D8-D9 AND D15-D16]
     Route: 042
     Dates: start: 20151130, end: 20180703
  2. DEXAMETHASONE [Suspect]
     Active Substance: DEXAMETHASONE
     Indication: Plasma cell myeloma
     Dosage: (D1-D2, D8-D9 AND D15-D16) [C1 TO C8 INDUCTION]
     Route: 048
     Dates: start: 20151130, end: 20160628
  3. DEXAMETHASONE [Suspect]
     Active Substance: DEXAMETHASONE
     Dosage: (D1-D2, D8-D9) [MAINTENANCE DOSE C 9 TO C 14]
     Route: 048
     Dates: start: 20160711, end: 20161129
  4. DEXAMETHASONE [Suspect]
     Active Substance: DEXAMETHASONE
     Dosage: [MAINTENANCE DOSE C 11]
     Route: 048
     Dates: start: 20161205, end: 20170306
  5. DEXAMETHASONE [Suspect]
     Active Substance: DEXAMETHASONE
     Dosage: (D16,22,23) [MAINTENANCE DOSE C 11]
     Route: 048
     Dates: start: 20170307, end: 20180703
  6. CARFILZOMIB [Suspect]
     Active Substance: CARFILZOMIB
     Indication: Plasma cell myeloma
     Dosage: ( D 1  TO D2 CYCLIC) [C1 INDUCTION]
     Route: 042
     Dates: start: 20151130, end: 20151201
  7. CARFILZOMIB [Suspect]
     Active Substance: CARFILZOMIB
     Dosage: 41 MG, CYCLIC (D8 TO D9, D15 TO D16 CYCLIC) [C1 TO C8 INDUCTION]
     Route: 042
     Dates: start: 20151207, end: 20160628
  8. CARFILZOMIB [Suspect]
     Active Substance: CARFILZOMIB
     Dosage: 41 MG, CYCLIC (D1-D2, D8-D9 AND D15-D16) [MAINTENANCE DOSE  C 9 TO C 21]
     Route: 042
     Dates: start: 20160711, end: 20170627
  9. CARFILZOMIB [Suspect]
     Active Substance: CARFILZOMIB
     Dosage: 31 MG, CYCLIC (D1-D2, D8-D9 AND D15-D16,) [MAINTENANCE DOSE C 22 TO C23]
     Route: 042
     Dates: start: 20170710, end: 20170822
  10. CARFILZOMIB [Suspect]
     Active Substance: CARFILZOMIB
     Dosage: 30 MG, CYCLIC (D1-D2, D8-D9 AND D15-D16,) [MAINTENANCE DOSE C 24 TO C34]
     Route: 042
     Dates: start: 20170904, end: 20180703
  11. CARFILZOMIB [Suspect]
     Active Substance: CARFILZOMIB
     Dosage: 30 MG, CYCLIC (D1,2,15,16,29,30) [END OF EMN09 PARTICIPATION FROM 1 TO 14]
     Route: 042
     Dates: start: 20180717, end: 20200318
  12. ACYCLOVIR [Concomitant]
     Active Substance: ACYCLOVIR
     Indication: Antiviral prophylaxis
     Route: 048
     Dates: start: 20150129
  13. FLUCONAZOLE [Concomitant]
     Active Substance: FLUCONAZOLE
     Indication: Antifungal prophylaxis
     Route: 048
     Dates: start: 20151201
  14. COTRIM [Concomitant]
     Active Substance: SULFAMETHOXAZOLE\TRIMETHOPRIM
     Indication: Antibiotic prophylaxis
     Route: 048
     Dates: start: 20151201
  15. MAGNESIUM [Concomitant]
     Active Substance: MAGNESIUM
     Indication: Prophylaxis
     Route: 048
  16. METOPROLOL SUCCINATE [Concomitant]
     Active Substance: METOPROLOL SUCCINATE
     Indication: Hypotension
     Dosage: .5 DOSAGE FORMS DAILY;
     Route: 048
     Dates: start: 20150129
  17. CALCIUM\VITAMIN D [Concomitant]
     Active Substance: CALCIUM\VITAMIN D
     Indication: Nutritional supplementation
     Route: 048
  18. CINNARIZINE\DIMENHYDRINATE [Concomitant]
     Active Substance: CINNARIZINE\DIMENHYDRINATE
     Indication: Antiemetic supportive care
     Dosage: (ON DEMAND)
     Route: 048
     Dates: start: 20151130
  19. GRANISETRON HYDROCHLORIDE [Concomitant]
     Active Substance: GRANISETRON HYDROCHLORIDE
     Indication: Antiemetic supportive care
     Dosage: (ON DEMAND)
     Route: 048
     Dates: start: 20151130

REACTIONS (2)
  - Pulmonary embolism [Recovered/Resolved]
  - Pyrexia [Recovered/Resolved]

NARRATIVE: CASE EVENT DATE: 20160208
